FAERS Safety Report 10032255 (Version 2)
Quarter: 2014Q2

REPORT INFORMATION
  Report Type: Spontaneous
  Country: US (occurrence: US)
  Receive Date: 20140324
  Receipt Date: 20140402
  Transmission Date: 20141212
  Serious: Yes (Hospitalization)
  Sender: FDA-Public Use
  Company Number: US-ACTELION-A-US2014-96132

PATIENT
  Age: 76 Year
  Sex: Female

DRUGS (8)
  1. OPSUMIT [Suspect]
     Indication: PULMONARY ARTERIAL HYPERTENSION
     Dosage: 10 MG, UNK
     Route: 048
     Dates: start: 20140110
  2. RIOCIGUAT [Concomitant]
  3. POTASSIUM [Concomitant]
  4. BUMETANIDE [Concomitant]
  5. COUMADIN [Concomitant]
  6. CALCIUM [Concomitant]
  7. VITAMIN D [Concomitant]
  8. SPIRONOLACTONE [Concomitant]

REACTIONS (4)
  - International normalised ratio abnormal [Recovered/Resolved]
  - Blood pressure abnormal [Recovered/Resolved]
  - Urinary tract infection [Recovered/Resolved]
  - Fluid overload [Recovered/Resolved]
